FAERS Safety Report 12536615 (Version 3)
Quarter: 2016Q3

REPORT INFORMATION
  Report Type: Spontaneous
  Country: US (occurrence: US)
  Receive Date: 20160707
  Receipt Date: 20160906
  Transmission Date: 20161109
  Serious: No
  Sender: FDA-Public Use
  Company Number: US-PFIZER INC-2016293897

PATIENT
  Age: 63 Year
  Sex: Male

DRUGS (2)
  1. ACCUPRIL [Suspect]
     Active Substance: QUINAPRIL HYDROCHLORIDE
     Indication: BLOOD PRESSURE ABNORMAL
     Dosage: 40 MG, 1X/DAY
     Dates: start: 2002
  2. TOPRIL [Concomitant]
     Dosage: 300 MG, DAILY

REACTIONS (3)
  - Respiratory disorder [Unknown]
  - Malaise [Unknown]
  - Nasopharyngitis [Unknown]
